FAERS Safety Report 6718519-7 (Version None)
Quarter: 2010Q2

REPORT INFORMATION
  Report Type: 
  Country: None (occurrence: None)
  Receive Date: 20100510
  Receipt Date: 20100427
  Transmission Date: 20101027
  Serious: Yes (Death, Other)
  Sender: FDA-Public Use
  Company Number: ES-WATSON-2010-06200

PATIENT

DRUGS (1)
  1. SERTRALINE HCL [Suspect]
     Indication: DRUG USE FOR UNKNOWN INDICATION

REACTIONS (6)
  - CHOLESTASIS [None]
  - HEPATITIS [None]
  - HYPERSENSITIVITY [None]
  - JAUNDICE [None]
  - PRURITUS [None]
  - URINE COLOUR ABNORMAL [None]
